FAERS Safety Report 22932874 (Version 3)
Quarter: 2023Q4

REPORT INFORMATION
  Report Type: Spontaneous
  Country: JP (occurrence: JP)
  Receive Date: 20230912
  Receipt Date: 20231021
  Transmission Date: 20240110
  Serious: No
  Sender: FDA-Public Use
  Company Number: JP-JNJFOC-20230921303

PATIENT
  Age: 6 Decade
  Sex: Male

DRUGS (2)
  1. INVEGA [Suspect]
     Active Substance: PALIPERIDONE
     Indication: Schizophrenia
     Route: 048
     Dates: end: 202308
  2. OLANZAPINE [Concomitant]
     Active Substance: OLANZAPINE
     Dosage: DOSE UNKNOWN
     Route: 065
     Dates: start: 202308

REACTIONS (1)
  - Therapeutic product effect incomplete [Unknown]
